FAERS Safety Report 5307571-1 (Version None)
Quarter: 2007Q2

REPORT INFORMATION
  Report Type: 
  Country: None (occurrence: None)
  Receive Date: 20070425
  Receipt Date: 20070417
  Transmission Date: 20071010
  Serious: Yes (Hospitalization)
  Sender: FDA-Public Use
  Company Number: GB-PFIZER INC-2007031510

PATIENT
  Age: 49 Year
  Sex: Female

DRUGS (4)
  1. SERTRALINE [Suspect]
     Dosage: TEXT:UNKNOWN
  2. CO-PROXAMOL [Suspect]
     Dosage: TEXT:UNKNOWN
     Route: 048
  3. PARACETAMOL [Suspect]
     Dosage: TEXT:UNKNOWN
     Route: 048
  4. RISPERDAL [Suspect]
     Dosage: TEXT:UNKNOWN

REACTIONS (11)
  - ALANINE AMINOTRANSFERASE INCREASED [None]
  - BLOOD ALKALINE PHOSPHATASE INCREASED [None]
  - BRAIN OEDEMA [None]
  - CSF GLUCOSE DECREASED [None]
  - GENERAL PHYSICAL HEALTH DETERIORATION [None]
  - HAEMODIALYSIS [None]
  - HEPATIC ENCEPHALOPATHY [None]
  - MULTIPLE DRUG OVERDOSE INTENTIONAL [None]
  - PULMONARY OEDEMA [None]
  - SOMNOLENCE [None]
  - URINE OUTPUT DECREASED [None]
